FAERS Safety Report 12416939 (Version 1)
Quarter: 2016Q2

REPORT INFORMATION
  Report Type: Spontaneous
  Country: JP (occurrence: JP)
  Receive Date: 20160530
  Receipt Date: 20160530
  Transmission Date: 20160815
  Serious: Yes (Other)
  Sender: FDA-Public Use
  Company Number: JP-JNJFOC-20140305111

PATIENT

DRUGS (2)
  1. REMINYL [Suspect]
     Active Substance: GALANTAMINE
     Indication: PRODUCT USED FOR UNKNOWN INDICATION
     Route: 048
  2. LAMISIL [Concomitant]
     Active Substance: TERBINAFINE HYDROCHLORIDE
     Route: 065

REACTIONS (1)
  - Electrocardiogram QT prolonged [Unknown]
